FAERS Safety Report 18139337 (Version 2)
Quarter: 2020Q3

REPORT INFORMATION
  Report Type: Report from Study
  Country: US (occurrence: US)
  Receive Date: 20200812
  Receipt Date: 20200827
  Transmission Date: 20201103
  Serious: Yes (Hospitalization)
  Sender: FDA-Public Use
  Company Number: US-GILEAD-2020-0489035

PATIENT
  Age: 74 Year
  Sex: Female

DRUGS (19)
  1. AMLODIPINE [Concomitant]
     Active Substance: AMLODIPINE BESYLATE
  2. ONDANSETRON [Concomitant]
     Active Substance: ONDANSETRON
  3. ESCITALOPRAM [Concomitant]
     Active Substance: ESCITALOPRAM OXALATE
  4. BUMETANIDE. [Concomitant]
     Active Substance: BUMETANIDE
  5. TYLENOL [Concomitant]
     Active Substance: ACETAMINOPHEN
  6. PANTOPRAZOLE [Concomitant]
     Active Substance: PANTOPRAZOLE
  7. DOCUSATE [Concomitant]
     Active Substance: DOCUSATE
  8. SENNA [Concomitant]
     Active Substance: SENNA LEAF\SENNOSIDES\SENNOSIDES A AND B
  9. ISOSORBIDE. [Concomitant]
     Active Substance: ISOSORBIDE
  10. POTASSIUM [Concomitant]
     Active Substance: POTASSIUM
  11. DEXTROSE. [Concomitant]
     Active Substance: DEXTROSE
  12. UPTRAVI [Concomitant]
     Active Substance: SELEXIPAG
  13. MIRTAZAPINE. [Concomitant]
     Active Substance: MIRTAZAPINE
  14. LOSARTAN. [Concomitant]
     Active Substance: LOSARTAN
  15. AMBRISENTAN [Suspect]
     Active Substance: AMBRISENTAN
     Indication: PULMONARY HYPERTENSION
     Dosage: 10 MG, QD
     Route: 065
     Dates: start: 20190307
  16. MELATONIN [Concomitant]
     Active Substance: MELATONIN
  17. BISACODYL. [Concomitant]
     Active Substance: BISACODYL
  18. SILDENAFIL. [Concomitant]
     Active Substance: SILDENAFIL
  19. MONTELUKAST [Concomitant]
     Active Substance: MONTELUKAST SODIUM

REACTIONS (1)
  - Unevaluable event [Not Recovered/Not Resolved]

NARRATIVE: CASE EVENT DATE: 20200730
